FAERS Safety Report 7624483-9 (Version None)
Quarter: 2011Q3

REPORT INFORMATION
  Report Type: 
  Country: None (occurrence: None)
  Receive Date: 20110720
  Receipt Date: 20110719
  Transmission Date: 20111222
  Serious: Yes (Hospitalization)
  Sender: FDA-Public Use
  Company Number: AU-BAYER-2011-062282

PATIENT
  Age: 45 Year
  Sex: Female
  Weight: 55 kg

DRUGS (4)
  1. CLONAZEPAM [Concomitant]
  2. BETASERON [Suspect]
     Indication: BRAIN NEOPLASM
     Dosage: 8 MIU, UNK
     Route: 058
     Dates: start: 20110715, end: 20110715
  3. DEXAMETHASONE [Concomitant]
  4. KEPRA [Concomitant]

REACTIONS (4)
  - DELIRIUM [None]
  - DIZZINESS [None]
  - ASTHENIA [None]
  - CONFUSIONAL STATE [None]
